FAERS Safety Report 9301944 (Version 1)
Quarter: 2013Q2

REPORT INFORMATION
  Report Type: Spontaneous
  Country: CH (occurrence: CH)
  Receive Date: 20130521
  Receipt Date: 20130521
  Transmission Date: 20140414
  Serious: Yes (Hospitalization)
  Sender: FDA-Public Use
  Company Number: CH-UCBSA-086041

PATIENT
  Age: 89 Year
  Sex: Male

DRUGS (16)
  1. KEPPRA [Suspect]
     Indication: EPILEPSY
     Route: 041
     Dates: start: 20130225
  2. STRUCTOKABIVEN [Suspect]
     Indication: MALNUTRITION
     Dosage: 1000 ML DURING 24 HOURS
     Route: 051
     Dates: start: 20130302
  3. ASPEGIC [Suspect]
     Indication: TRANSIENT ISCHAEMIC ATTACK
     Route: 040
     Dates: start: 20130222
  4. CLEXANE [Suspect]
     Indication: THROMBOPHLEBITIS
     Route: 040
     Dates: start: 20130220
  5. NITRODERM [Concomitant]
     Indication: ANGINA PECTORIS
     Route: 003
     Dates: start: 20130306
  6. MAGNESIUM [Concomitant]
     Indication: MAGNESIUM DEFICIENCY
     Route: 040
     Dates: start: 20130314
  7. ADDAMEL N [Concomitant]
     Indication: MALNUTRITION
     Dosage: 1 AMPULE PER DAY
     Route: 040
     Dates: start: 20130227
  8. CERNEVIT [Concomitant]
     Indication: HYPOVITAMINOSIS
     Dosage: 1 AMPULE PER DAY
     Route: 040
     Dates: start: 20130227
  9. ANXIOLIT [Concomitant]
     Indication: ANXIETY DISORDER
     Route: 048
     Dates: start: 20120119, end: 20130219
  10. CELEBREX [Concomitant]
     Indication: PAIN
     Route: 048
     Dates: start: 20120119, end: 20130219
  11. EPRIL [Concomitant]
     Indication: ESSENTIAL HYPERTENSION
     Route: 048
     Dates: start: 20120119, end: 20130219
  12. SEROQUEL [Concomitant]
     Indication: RESTLESSNESS
     Route: 048
     Dates: start: 20120119, end: 20130219
  13. SEROQUEL [Concomitant]
     Indication: AGITATION
     Route: 048
     Dates: start: 20120119, end: 20130219
  14. XALATAN [Concomitant]
     Indication: GLAUCOMA
     Dosage: 1GTTE 2X/D
     Route: 047
     Dates: start: 20120119, end: 20130219
  15. NEXIUM [Concomitant]
     Indication: DYSPEPSIA
     Route: 048
     Dates: start: 20120119, end: 20130219
  16. ZOLDORM [Concomitant]
     Indication: INSOMNIA
     Route: 048
     Dates: start: 20120119, end: 20130219

REACTIONS (4)
  - Liver injury [Not Recovered/Not Resolved]
  - Cerebrovascular accident [Unknown]
  - Hepatocellular injury [None]
  - Cholestasis [None]
